FAERS Safety Report 8494140-8 (Version None)
Quarter: 2012Q2

REPORT INFORMATION
  Report Type: 
  Country: None (occurrence: None)
  Receive Date: 20120628
  Receipt Date: 20120619
  Transmission Date: 20120825
  Serious: Yes (Other)
  Sender: FDA-Public Use
  Company Number: 2012MB000002

PATIENT
  Age: 35 Year
  Sex: Male

DRUGS (2)
  1. MITOMYCIN [Suspect]
     Indication: TRABECULECTOMY
     Dosage: 0.2 MG/ML
  2. ANTIGLAUCOMA PREPARATEIONS AND MIOTICS [Concomitant]

REACTIONS (3)
  - RETINAL DETACHMENT [None]
  - HYPOTONY OF EYE [None]
  - VISUAL ACUITY REDUCED [None]
